FAERS Safety Report 6158704-9 (Version None)
Quarter: 2009Q2

REPORT INFORMATION
  Report Type: 
  Country: None (occurrence: None)
  Receive Date: 20090417
  Receipt Date: 20090414
  Transmission Date: 20091009
  Serious: Yes (Hospitalization, Other)
  Sender: FDA-Public Use
  Company Number: A0778446A

PATIENT
  Age: 50 Year
  Sex: Female

DRUGS (2)
  1. ARIXTRA [Suspect]
     Dosage: 2.5MG ALTERNATE DAYS
     Route: 058
     Dates: start: 20090201, end: 20090201
  2. UNKNOWN [Concomitant]

REACTIONS (2)
  - DRUG LEVEL INCREASED [None]
  - PULMONARY EMBOLISM [None]
